FAERS Safety Report 9148078 (Version 1)
Quarter: 2013Q1

REPORT INFORMATION
  Report Type: Spontaneous
  Country: US (occurrence: US)
  Receive Date: 20130308
  Receipt Date: 20130308
  Transmission Date: 20140127
  Serious: No
  Sender: FDA-Public Use
  Company Number: US-009507513-1303USA003518

PATIENT
  Sex: Male

DRUGS (2)
  1. VYTORIN [Suspect]
     Dosage: 10/10 MG, QD
  2. ENALAPRIL MALEATE [Concomitant]

REACTIONS (1)
  - Erectile dysfunction [Not Recovered/Not Resolved]
